FAERS Safety Report 5985094-4 (Version None)
Quarter: 2008Q4

REPORT INFORMATION
  Report Type: 
  Country: None (occurrence: None)
  Receive Date: 20081208
  Receipt Date: 20081124
  Transmission Date: 20090506
  Serious: Yes (Death)
  Sender: FDA-Public Use
  Company Number: GB-GENENTECH-272840

PATIENT
  Age: 77 Year
  Sex: Female

DRUGS (4)
  1. MABTHERA [Suspect]
     Indication: CHRONIC LYMPHOCYTIC LEUKAEMIA
     Dosage: UNK
     Route: 065
  2. METHYLPREDNISOLONE 16MG TAB [Suspect]
     Indication: CHRONIC LYMPHOCYTIC LEUKAEMIA
     Dosage: UNK
     Route: 065
  3. FLUDARABINE PHOSPHATE [Suspect]
     Indication: CHRONIC LYMPHOCYTIC LEUKAEMIA
     Route: 065
  4. CHLORAMBUCIL [Suspect]
     Indication: CHRONIC LYMPHOCYTIC LEUKAEMIA
     Route: 065

REACTIONS (4)
  - CHRONIC LYMPHOCYTIC LEUKAEMIA REFRACTORY [None]
  - DISEASE PROGRESSION [None]
  - MALIGNANT NEOPLASM PROGRESSION [None]
  - NO THERAPEUTIC RESPONSE [None]
